FAERS Safety Report 5488169-1 (Version None)
Quarter: 2007Q3

REPORT INFORMATION
  Report Type: 
  Country: None (occurrence: None)
  Receive Date: 20070927
  Receipt Date: 20070326
  Transmission Date: 20080115
  Serious: Yes (Hospitalization)
  Sender: FDA-Public Use
  Company Number: FABR-11938

PATIENT
  Age: 58 Year
  Sex: Female

DRUGS (14)
  1. FABRAZYME [Suspect]
     Indication: FABRY'S DISEASE
     Dosage: 1 MG/KG Q2WKS IV
     Route: 042
     Dates: start: 20070309
  2. BETASERON [Concomitant]
  3. ALPRAZOLAM [Concomitant]
  4. POTASSIUM CHLORIDE [Concomitant]
  5. GABAPENTN [Concomitant]
  6. EFFEXOR [Concomitant]
  7. NORVASC [Concomitant]
  8. LISINOPRIL [Concomitant]
  9. TRIMETHOPRIM [Concomitant]
  10. AMBIEN [Concomitant]
  11. COLACE [Concomitant]
  12. MAGNESIUM CITRATE [Concomitant]
  13. PROTONIX [Concomitant]
  14. TRAMADOL [Concomitant]

REACTIONS (2)
  - HEART RATE DECREASED [None]
  - HYPOTENSION [None]
